FAERS Safety Report 24298798 (Version 1)
Quarter: 2024Q3

REPORT INFORMATION
  Report Type: Spontaneous
  Country: CA (occurrence: CA)
  Receive Date: 20240909
  Receipt Date: 20240909
  Transmission Date: 20241016
  Serious: Yes (Hospitalization, Other)
  Sender: FRESENIUS KABI
  Company Number: CA-FreseniusKabi-FK202413145

PATIENT
  Sex: Female

DRUGS (7)
  1. GANCICLOVIR [Suspect]
     Active Substance: GANCICLOVIR
     Indication: Product used for unknown indication
     Dosage: FORM: POWDER FOR SOLUTION INTRAVENOUS
     Route: 042
  2. OCREVUS [Suspect]
     Active Substance: OCRELIZUMAB
     Indication: Relapsing-remitting multiple sclerosis
     Dosage: CYCLICAL?FORM: SOLUTION INTRAVENOUS
     Route: 042
  3. OCREVUS [Suspect]
     Active Substance: OCRELIZUMAB
     Dosage: CYCLICAL?FORM: SOLUTION INTRAVENOUS
     Route: 042
  4. ADRIAMYCIN [Concomitant]
     Active Substance: DOXORUBICIN HYDROCHLORIDE
     Indication: Product used for unknown indication
     Dosage: FORM: NOT SPECIFIED
  5. BISOPROLOL [Concomitant]
     Active Substance: BISOPROLOL\BISOPROLOL FUMARATE
     Indication: Product used for unknown indication
     Dosage: FORM: TABLETS?ROUTE: UNKNOWN
  6. VALACYCLOVIR [Concomitant]
     Active Substance: VALACYCLOVIR HYDROCHLORIDE
     Indication: Product used for unknown indication
     Dosage: FORM: TABLETS
  7. REMDESIVIR [Concomitant]
     Active Substance: REMDESIVIR
     Indication: Product used for unknown indication

REACTIONS (7)
  - COVID-19 [Not Recovered/Not Resolved]
  - Cardiac failure [Not Recovered/Not Resolved]
  - Cytomegalovirus infection [Not Recovered/Not Resolved]
  - Ejection fraction decreased [Not Recovered/Not Resolved]
  - Hypertransaminasaemia [Not Recovered/Not Resolved]
  - Infection [Not Recovered/Not Resolved]
  - Neutrophil count decreased [Not Recovered/Not Resolved]
